FAERS Safety Report 10788031 (Version 1)
Quarter: 2015Q1

REPORT INFORMATION
  Report Type: Spontaneous
  Country: US (occurrence: None)
  Receive Date: 20150210
  Receipt Date: 20150210
  Transmission Date: 20150721
  Serious: Yes (Hospitalization, Other)
  Sender: FDA-Public Use
  Company Number: 2015010195

PATIENT
  Age: 26 Year
  Sex: Male

DRUGS (9)
  1. SOMA [Suspect]
     Active Substance: CARISOPRODOL
     Indication: BACK PAIN
     Dates: start: 20110921, end: 20111221
  2. HEROIN [Suspect]
     Active Substance: DIACETYLMORPHINE
  3. METHADONE [Suspect]
     Active Substance: METHADONE HYDROCHLORIDE
     Indication: BACK PAIN
     Dates: start: 20110921, end: 20111221
  4. TRAZODONE [Suspect]
     Active Substance: TRAZODONE HYDROCHLORIDE
     Indication: BACK PAIN
     Dates: start: 20110921, end: 20111221
  5. DILAUDID [Suspect]
     Active Substance: HYDROMORPHONE HYDROCHLORIDE
     Indication: BACK PAIN
     Dates: start: 20110921, end: 20111221
  6. OXYCODONE(OXYCODONE) [Suspect]
     Active Substance: OXYCODONE
     Indication: BACK PAIN
     Dates: start: 20110921, end: 20111221
  7. MORPHINE [Suspect]
     Active Substance: MORPHINE
     Indication: BACK PAIN
     Dates: start: 20110921, end: 20111221
  8. CLONAZEPAM. [Suspect]
     Active Substance: CLONAZEPAM
     Indication: BACK PAIN
     Dates: start: 20110921, end: 20111221
  9. FIORICET [Suspect]
     Active Substance: ACETAMINOPHEN\BUTALBITAL\CAFFEINE
     Indication: BACK PAIN
     Dates: start: 20110921, end: 20111221

REACTIONS (3)
  - Drug abuse [None]
  - Drug dependence [None]
  - Post-traumatic stress disorder [None]
